FAERS Safety Report 5692548-7 (Version None)
Quarter: 2008Q2

REPORT INFORMATION
  Report Type: 
  Country: None (occurrence: None)
  Receive Date: 20080402
  Receipt Date: 20080320
  Transmission Date: 20081010
  Serious: Yes (Other)
  Sender: FDA-Public Use
  Company Number: NL-GENENTECH-258451

PATIENT
  Sex: Female
  Weight: 75 kg

DRUGS (3)
  1. HERCEPTIN [Suspect]
     Indication: BREAST CANCER METASTATIC
     Dosage: 8 MG/KG, SINGLE
     Route: 042
     Dates: start: 20071201
  2. HERCEPTIN [Suspect]
     Dosage: 6 MG/KG, SINGLE
     Route: 042
     Dates: start: 20080219
  3. FUROSEMIDE [Concomitant]
     Indication: DRUG USE FOR UNKNOWN INDICATION

REACTIONS (1)
  - SCLERODERMA [None]
